FAERS Safety Report 7327623-4 (Version None)
Quarter: 2011Q1

REPORT INFORMATION
  Report Type: 
  Country: None (occurrence: None)
  Receive Date: 20110303
  Receipt Date: 20110223
  Transmission Date: 20110831
  Serious: No
  Sender: FDA-Public Use
  Company Number: US-BIOGENIDEC-2011BI007508

PATIENT
  Age: 42 Year
  Sex: Female

DRUGS (3)
  1. OMEPRAZOLE [Concomitant]
     Indication: PROPHYLAXIS
     Dates: start: 20100901
  2. ENDOMETHACIN [Concomitant]
     Indication: MIGRAINE
     Dates: start: 20100901
  3. AVONEX [Suspect]
     Indication: MULTIPLE SCLEROSIS
     Route: 030
     Dates: start: 20101011

REACTIONS (6)
  - MYALGIA [None]
  - THROAT TIGHTNESS [None]
  - CATHETER SITE PAIN [None]
  - MULTIPLE SCLEROSIS RELAPSE [None]
  - INJECTION SITE HAEMATOMA [None]
  - VEIN DISORDER [None]
